FAERS Safety Report 19069571 (Version 2)
Quarter: 2021Q4

REPORT INFORMATION
  Report Type: Spontaneous
  Country: US (occurrence: US)
  Receive Date: 20210329
  Receipt Date: 20211119
  Transmission Date: 20220303
  Serious: Yes (Death, Other)
  Sender: FDA-Public Use
  Company Number: US-MYLANLABS-2021M1018826

PATIENT
  Age: 61 Year
  Sex: Male
  Weight: 115 kg

DRUGS (2)
  1. HYDROCHLOROTHIAZIDE\VALSARTAN [Suspect]
     Active Substance: HYDROCHLOROTHIAZIDE\VALSARTAN
     Indication: Hypertension
     Dosage: UNK
  2. HYDROCHLOROTHIAZIDE\VALSARTAN [Suspect]
     Active Substance: HYDROCHLOROTHIAZIDE\VALSARTAN
     Dosage: 320 MILLIGRAM
     Dates: start: 20121018, end: 20150213

REACTIONS (1)
  - Hepatic cancer [Fatal]

NARRATIVE: CASE EVENT DATE: 20181011
